FAERS Safety Report 4468326-3 (Version None)
Quarter: 2004Q4

REPORT INFORMATION
  Report Type: 
  Country: None (occurrence: None)
  Receive Date: 20041007
  Receipt Date: 20040830
  Transmission Date: 20050328
  Serious: Yes (Other)
  Sender: FDA-Public Use
  Company Number: BR-ROCHE-379091

PATIENT
  Age: 36 Year
  Sex: Female
  Weight: 60 kg

DRUGS (2)
  1. ROACUTAN [Suspect]
     Indication: ACNE
     Route: 048
     Dates: start: 20040805, end: 20040827
  2. MALIASIN [Suspect]
     Route: 048
     Dates: start: 19890615

REACTIONS (2)
  - CONVULSION [None]
  - DRUG INTERACTION [None]
